FAERS Safety Report 17568213 (Version 1)
Quarter: 2020Q1

REPORT INFORMATION
  Report Type: Spontaneous
  Country: CA (occurrence: CA)
  Receive Date: 20200321
  Receipt Date: 20200321
  Transmission Date: 20200409
  Serious: Yes (Other)
  Sender: FDA-Public Use
  Company Number: CA-RECORDATI RARE DISEASES-2081848

PATIENT
  Age: 29 Year
  Sex: Male

DRUGS (3)
  1. SANDOSTATIN LAR DEPOT [Suspect]
     Active Substance: OCTREOTIDE ACETATE
     Route: 030
     Dates: start: 20170721, end: 20170922
  2. SIGNIFOR LAR [Suspect]
     Active Substance: PASIREOTIDE PAMOATE
     Indication: ACROMEGALY
     Route: 030
     Dates: start: 20171228
  3. SANDOSTATIN LAR DEPOT [Suspect]
     Active Substance: OCTREOTIDE ACETATE
     Route: 030
     Dates: start: 20170303, end: 20170623

REACTIONS (12)
  - Product quality issue [None]
  - Cardiac fibrillation [None]
  - Body temperature decreased [None]
  - Abdominal distension [None]
  - Gallbladder disorder [None]
  - Dyspepsia [None]
  - Palpitations [None]
  - Faeces discoloured [None]
  - Flatulence [None]
  - Alopecia [None]
  - Inappropriate schedule of product administration [None]
  - Blood pressure diastolic decreased [None]
